FAERS Safety Report 13404297 (Version 2)
Quarter: 2017Q2

REPORT INFORMATION
  Report Type: Spontaneous
  Country: CN (occurrence: CN)
  Receive Date: 20170405
  Receipt Date: 20170508
  Transmission Date: 20170830
  Serious: Yes (Other)
  Sender: FDA-Public Use
  Company Number: CN-BAYER-2017-058653

PATIENT
  Age: 29 Year
  Sex: Female

DRUGS (1)
  1. YASMIN [Suspect]
     Active Substance: DROSPIRENONE\ETHINYL ESTRADIOL

REACTIONS (4)
  - Deafness transitory [Recovered/Resolved]
  - Inappropriate schedule of drug administration [None]
  - Pelvic pain [None]
  - Nerve injury [None]
